FAERS Safety Report 9846594 (Version 2)
Quarter: 2014Q1

REPORT INFORMATION
  Report Type: Spontaneous
  Country: US (occurrence: US)
  Receive Date: 20140127
  Receipt Date: 20140213
  Transmission Date: 20141002
  Serious: Yes (Life-Threatening)
  Sender: FDA-Public Use
  Company Number: US-GLAXOSMITHKLINE-A1058114A

PATIENT
  Age: 62 Year
  Sex: Female

DRUGS (1)
  1. BREO ELLIPTA [Suspect]
     Indication: CHRONIC OBSTRUCTIVE PULMONARY DISEASE
     Route: 065
     Dates: start: 20131212, end: 20131214

REACTIONS (3)
  - Angioedema [Recovered/Resolved]
  - Laryngeal oedema [Recovered/Resolved]
  - Face oedema [Recovered/Resolved]
